FAERS Safety Report 5500634-7 (Version None)
Quarter: 2007Q4

REPORT INFORMATION
  Report Type: 
  Country: None (occurrence: None)
  Receive Date: 20071025
  Receipt Date: 20071012
  Transmission Date: 20080405
  Serious: Yes (Death, Hospitalization, Other)
  Sender: FDA-Public Use
  Company Number: 2007US002559

PATIENT
  Age: 58 Year
  Sex: Male

DRUGS (3)
  1. PROGRAF [Suspect]
     Indication: LIVER TRANSPLANT
     Dosage: 2 MG, BID, ORAL; ORAL
     Route: 048
  2. MYCOPHENOLATE MOFETIL [Suspect]
     Indication: LIVER TRANSPLANT
     Dosage: 1500 MG, BID, ORAL
     Route: 048
  3. PREDNISONE TAB [Suspect]
     Indication: LIVER TRANSPLANT
     Dosage: 10 MG, BID, ORAL
     Route: 048

REACTIONS (6)
  - AORTIC DISSECTION [None]
  - CYTOMEGALOVIRUS INFECTION [None]
  - GENERAL PHYSICAL HEALTH DETERIORATION [None]
  - PATHOGEN RESISTANCE [None]
  - REPERFUSION INJURY [None]
  - TRANSPLANT REJECTION [None]
